FAERS Safety Report 5968124-5 (Version None)
Quarter: 2008Q4

REPORT INFORMATION
  Report Type: 
  Country: None (occurrence: None)
  Receive Date: 20081126
  Receipt Date: 20081113
  Transmission Date: 20090506
  Serious: No
  Sender: FDA-Public Use
  Company Number: US-B.I. PHARMACEUTICALS,INC./RIDGEFIELD-2008-BP-17607BP

PATIENT
  Sex: Female

DRUGS (7)
  1. SPIRIVA [Suspect]
     Indication: CHRONIC OBSTRUCTIVE PULMONARY DISEASE
     Dates: start: 20080601
  2. SPIRIVA [Suspect]
     Indication: ASTHMA
  3. SPIRIVA [Suspect]
     Indication: BRONCHITIS CHRONIC
  4. SPIRIVA [Suspect]
     Indication: DYSPNOEA
  5. ADVAIR DISKUS 100/50 [Concomitant]
     Indication: DYSPNOEA
  6. ATROVENT HFA INHALATION AEROSOL [Concomitant]
     Indication: DYSPNOEA
  7. ALBUTEROL SULFATE [Concomitant]
     Indication: DYSPNOEA

REACTIONS (1)
  - PNEUMONIA [None]
